FAERS Safety Report 8881226 (Version 1)
Quarter: 2012Q4

REPORT INFORMATION
  Report Type: 
  Country: US (occurrence: US)
  Receive Date: 20121031
  Receipt Date: 20121031
  Transmission Date: 20130627
  Serious: Yes (Other)
  Sender: FDA-Public Use
  Company Number: CHPA2012US022348

PATIENT
  Age: 50 Year
  Sex: Female

DRUGS (2)
  1. BENEFIBER W/ WHEAT DEXTRIN [Suspect]
     Indication: BOWEL MOVEMENT IRREGULARITY
     Dosage: 2 tsp once daily
     Route: 048
     Dates: start: 2009
  2. CALCIUM W/VITAMIN D NOS [Concomitant]
     Dosage: 600 mg, two times daily
     Dates: start: 2008

REACTIONS (4)
  - Arrhythmia [Recovered/Resolved]
  - Heart rate decreased [Recovered/Resolved]
  - Chest discomfort [Recovered/Resolved]
  - Off label use [Unknown]
